FAERS Safety Report 8492718-9 (Version None)
Quarter: 2012Q3

REPORT INFORMATION
  Report Type: 
  Country: None (occurrence: None)
  Receive Date: 20120706
  Receipt Date: 20120703
  Transmission Date: 20120928
  Serious: Yes (Death, Hospitalization)
  Sender: FDA-Public Use
  Company Number: CA-ROCHE-790219

PATIENT
  Sex: Female
  Weight: 60.836 kg

DRUGS (12)
  1. ELAVIL [Concomitant]
  2. ACTEMRA [Suspect]
     Route: 042
  3. ARAVA [Concomitant]
  4. CELEBREX [Concomitant]
  5. ACTEMRA [Suspect]
  6. RABEPRAZOLE SODIUM [Concomitant]
  7. PLAQUENIL [Concomitant]
  8. CALCIUM SUPPLEMENT [Concomitant]
  9. HYDROXYCHLOROQUINE SULFATE [Concomitant]
  10. ACTEMRA [Suspect]
     Indication: RHEUMATOID ARTHRITIS
     Route: 042
     Dates: start: 20110105, end: 20110907
  11. ACTEMRA [Suspect]
  12. PREDNISONE [Concomitant]

REACTIONS (3)
  - HIP ARTHROPLASTY [None]
  - KIDNEY INFECTION [None]
  - DEATH [None]
